FAERS Safety Report 4785334-3 (Version None)
Quarter: 2005Q3

REPORT INFORMATION
  Report Type: 
  Country: None (occurrence: None)
  Receive Date: 20050914
  Receipt Date: 20050706
  Transmission Date: 20060218
  Serious: Yes (Hospitalization, Other)
  Sender: FDA-Public Use
  Company Number: 163-20785-04050555

PATIENT
  Age: 67 Year
  Sex: Female
  Weight: 57.1 kg

DRUGS (7)
  1. THALOMID [Suspect]
     Indication: MULTIPLE MYELOMA
     Dosage: 200-400MG STARTING ON DAY 4, DAILY, INDC. 1/ INDUCATION PHASE, ORAL; SEE IMAGE
     Route: 048
     Dates: start: 20040429, end: 20040701
  2. THALOMID [Suspect]
     Indication: MULTIPLE MYELOMA
     Dosage: 200-400MG STARTING ON DAY 4, DAILY, INDC. 1/ INDUCATION PHASE, ORAL; SEE IMAGE
     Route: 048
     Dates: start: 20040701, end: 20050101
  3. GENASENSE [Suspect]
     Indication: MULTIPLE MYELOMA
     Dosage: 5 MG/KG/DAY, D1-7, 22-28, 43-49, Q.D. INDC.1 / INDUCTION PHASE, CIV, INTRAVENOUS DRIP; SEE IMAGE
     Route: 041
     Dates: start: 20040426, end: 20040701
  4. GENASENSE [Suspect]
     Indication: MULTIPLE MYELOMA
     Dosage: 5 MG/KG/DAY, D1-7, 22-28, 43-49, Q.D. INDC.1 / INDUCTION PHASE, CIV, INTRAVENOUS DRIP; SEE IMAGE
     Route: 041
     Dates: start: 20040729, end: 20040801
  5. GENASENSE [Suspect]
     Indication: MULTIPLE MYELOMA
     Dosage: 5 MG/KG/DAY, D1-7, 22-28, 43-49, Q.D. INDC.1 / INDUCTION PHASE, CIV, INTRAVENOUS DRIP; SEE IMAGE
     Route: 041
     Dates: start: 20040902, end: 20050301
  6. DEXAMETHASONE [Suspect]
     Indication: MULTIPLE MYELOMA
     Dosage: 40 MG INDC. 1/ INDUCTION PHASE, Q.D. D4-7, 25-28, 46-49, ORAL; SEE IMAGE
     Route: 048
     Dates: start: 20040429, end: 20040701
  7. DEXAMETHASONE [Suspect]
     Indication: MULTIPLE MYELOMA
     Dosage: 40 MG INDC. 1/ INDUCTION PHASE, Q.D. D4-7, 25-28, 46-49, ORAL; SEE IMAGE
     Route: 048
     Dates: start: 20040729, end: 20050301

REACTIONS (8)
  - COUGH [None]
  - DIARRHOEA [None]
  - FATIGUE [None]
  - FEBRILE NEUTROPENIA [None]
  - HAEMOGLOBIN DECREASED [None]
  - HYPOTENSION [None]
  - PYREXIA [None]
  - VOMITING [None]
